FAERS Safety Report 13239291 (Version 3)
Quarter: 2017Q1

REPORT INFORMATION
  Report Type: Spontaneous
  Country: US (occurrence: US)
  Receive Date: 20170216
  Receipt Date: 20170310
  Transmission Date: 20170428
  Serious: No
  Sender: FDA-Public Use
  Company Number: US-ACTELION-A-NJ2017-149925

PATIENT
  Age: 51 Year
  Sex: Female
  Weight: 102.49 kg

DRUGS (5)
  1. LETAIRIS [Concomitant]
     Active Substance: AMBRISENTAN
  2. COUMADIN [Concomitant]
     Active Substance: WARFARIN SODIUM
  3. SILDENAFIL CITRATE. [Concomitant]
     Active Substance: SILDENAFIL CITRATE
  4. UPTRAVI [Suspect]
     Active Substance: SELEXIPAG
     Indication: PULMONARY ARTERIAL HYPERTENSION
     Dosage: 400 MCG, BID
     Route: 048
     Dates: end: 201702
  5. TYVASO [Concomitant]
     Active Substance: TREPROSTINIL

REACTIONS (9)
  - Fluid retention [Unknown]
  - Myalgia [Unknown]
  - Pain [Unknown]
  - Peripheral swelling [Unknown]
  - Drug intolerance [Unknown]
  - Gait disturbance [Unknown]
  - Bedridden [Unknown]
  - Diarrhoea [Unknown]
  - Back pain [Unknown]
